FAERS Safety Report 7218536-7 (Version None)
Quarter: 2011Q1

REPORT INFORMATION
  Report Type: 
  Country: None (occurrence: None)
  Receive Date: 20110110
  Receipt Date: 20110104
  Transmission Date: 20110831
  Serious: Yes (Life-Threatening, Hospitalization)
  Sender: FDA-Public Use
  Company Number: FR-PFIZER INC-2010181572

PATIENT
  Age: 74 Year
  Sex: Female
  Weight: 65 kg

DRUGS (14)
  1. CRESTOR [Concomitant]
     Dosage: UNK
     Dates: end: 20101202
  2. IMOVANE [Concomitant]
     Dosage: UNK
     Dates: end: 20101212
  3. ASPIRIN [Concomitant]
  4. EZETROL [Concomitant]
     Dosage: UNK
     Dates: end: 20101202
  5. PARACETAMOL [Concomitant]
     Dosage: 1 G, 4X/DAY
     Dates: start: 20101117, end: 20101202
  6. OFLOCET [Suspect]
     Dosage: 200 MG, 3X/DAY
     Dates: start: 20101127, end: 20101202
  7. OMEPRAZOLE [Concomitant]
     Dosage: UNK
     Dates: start: 20101116
  8. LANSOPRAZOLE [Concomitant]
     Dosage: UNK
     Dates: start: 20101116
  9. ZYVOX [Suspect]
     Dosage: 600 MG, 2X/DAY
     Route: 048
     Dates: start: 20101127, end: 20101202
  10. SOTALOL HCL [Concomitant]
     Dosage: UNK
     Dates: start: 20101118, end: 20101202
  11. TARDYFERON [Concomitant]
     Dosage: UNK
     Dates: start: 20101118
  12. LEDERFOLIN [Concomitant]
     Dosage: UNK
     Dates: start: 20101118, end: 20101202
  13. PERINDOPRIL ERBUMINE [Concomitant]
     Dosage: UNK
  14. LASIX [Concomitant]

REACTIONS (1)
  - HEPATIC FAILURE [None]
